FAERS Safety Report 22117499 (Version 2)
Quarter: 2023Q2

REPORT INFORMATION
  Report Type: Spontaneous
  Country: US (occurrence: US)
  Receive Date: 20230321
  Receipt Date: 20230412
  Transmission Date: 20230722
  Serious: Yes (Other)
  Sender: FDA-Public Use
  Company Number: US-MLMSERVICE-20230302-4138718-1

PATIENT

DRUGS (15)
  1. CYCLOPHOSPHAMIDE [Suspect]
     Active Substance: CYCLOPHOSPHAMIDE
     Indication: Medulloblastoma recurrent
     Dosage: UNK
     Route: 065
  2. CYCLOPHOSPHAMIDE [Suspect]
     Active Substance: CYCLOPHOSPHAMIDE
     Indication: Medulloblastoma
     Dosage: UNK, 30.9 MG/M2/DAY; DAYS 22-42
     Route: 065
     Dates: start: 2012
  3. CYCLOPHOSPHAMIDE [Suspect]
     Active Substance: CYCLOPHOSPHAMIDE
     Dosage: 50 MILLIGRAM/SQ. METER, CYCLICAL (DAYS 22-42 EVERY 42 DAYS)
     Route: 048
     Dates: start: 20120220, end: 2012
  4. CYCLOPHOSPHAMIDE [Suspect]
     Active Substance: CYCLOPHOSPHAMIDE
     Dosage: UNK, 50% CYCLOPHOSPHAMIDE DOSE REDUCTION
     Route: 048
     Dates: start: 20120928
  5. ETOPOSIDE [Suspect]
     Active Substance: ETOPOSIDE
     Indication: Medulloblastoma recurrent
     Dosage: 1050 MILLIGRAM/SQ. METER, CYCLICAL (DAYS 1-21 EVERY 42 DAYS)
     Route: 048
     Dates: start: 20120220, end: 2012
  6. ETOPOSIDE [Suspect]
     Active Substance: ETOPOSIDE
     Dosage: UNK, REDUCING THE ETOPOSIDE DOSE BY 50%
     Route: 048
     Dates: start: 20120717
  7. ISOTRETINOIN [Suspect]
     Active Substance: ISOTRETINOIN
     Indication: Medulloblastoma recurrent
     Dosage: UNK
     Route: 065
     Dates: start: 2011, end: 2011
  8. CISPLATIN [Suspect]
     Active Substance: CISPLATIN
     Indication: Medulloblastoma
     Dosage: UNK, MAINTENANCE
     Route: 065
  9. LOMUSTINE [Suspect]
     Active Substance: LOMUSTINE
     Indication: Medulloblastoma
     Dosage: UNK, MAINTENANCE
     Route: 065
  10. TEMOZOLOMIDE [Suspect]
     Active Substance: TEMOZOLOMIDE
     Indication: Medulloblastoma recurrent
     Dosage: UNK
     Route: 065
  11. TEMOZOLOMIDE [Suspect]
     Active Substance: TEMOZOLOMIDE
     Dosage: 1260 MILLIGRAM/SQ. METER, CYCLICAL (60 MG/M2/DAY; DAYS 1?21, EVERY 3 WEEKS)
     Route: 065
     Dates: start: 2012, end: 20120220
  12. VINCRISTINE [Suspect]
     Active Substance: VINCRISTINE
     Indication: Medulloblastoma
     Dosage: UNK
     Route: 065
  13. BEVACIZUMAB [Concomitant]
     Active Substance: BEVACIZUMAB
     Indication: Medulloblastoma recurrent
     Dosage: 5 MILLIGRAM/KILOGRAM FOR EVERY 3 WEEKS
     Route: 065
     Dates: start: 2012, end: 2012
  14. CELECOXIB [Concomitant]
     Active Substance: CELECOXIB
     Indication: Medulloblastoma recurrent
     Dosage: 250 MG/M2, DAILY, EVERY 3 WEEKS
     Route: 065
     Dates: start: 2012, end: 2012
  15. VALPROIC ACID [Concomitant]
     Active Substance: VALPROIC ACID
     Indication: Medulloblastoma recurrent
     Dosage: 15 MG/KG DAILY
     Route: 065
     Dates: start: 2012, end: 2012

REACTIONS (2)
  - Haematotoxicity [Recovered/Resolved]
  - Pancytopenia [Recovered/Resolved]

NARRATIVE: CASE EVENT DATE: 20120101
